FAERS Safety Report 19085785 (Version 3)
Quarter: 2021Q2

REPORT INFORMATION
  Report Type: Report from Study
  Country: US (occurrence: US)
  Receive Date: 20210402
  Receipt Date: 20210614
  Transmission Date: 20210717
  Serious: Yes (Hospitalization, Other)
  Sender: FDA-Public Use
  Company Number: US-ROCHE-2782835

PATIENT
  Age: 60 Year
  Sex: Male
  Weight: 85.3 kg

DRUGS (11)
  1. OBINUTUZUMAB. [Suspect]
     Active Substance: OBINUTUZUMAB
     Route: 042
  2. VENETOCLAX. [Suspect]
     Active Substance: VENETOCLAX
     Indication: CHRONIC LYMPHOCYTIC LEUKAEMIA
     Dosage: 1?7 CYCLE 3?LAST ADMINISTERED DATE? 22?JAN?2021, DRUG INTERRUPTED,?TOTAL DOSE ADMINISTERED THIS COUR
     Route: 048
     Dates: start: 20200825, end: 20210122
  3. OBINUTUZUMAB. [Suspect]
     Active Substance: OBINUTUZUMAB
     Indication: CHRONIC LYMPHOCYTIC LEUKAEMIA
     Dosage: 100 MG IV ON DAY 1, CYCLE 1?LAST ADMINISTERED DATE? 19/JAN/2021
     Route: 042
     Dates: start: 20200825, end: 20210119
  4. OBINUTUZUMAB. [Suspect]
     Active Substance: OBINUTUZUMAB
     Dosage: ON DAY 15, CYCLE 1
     Route: 042
  5. VENETOCLAX. [Suspect]
     Active Substance: VENETOCLAX
     Dosage: 22?28, CYCLE 3
     Route: 048
  6. VENETOCLAX. [Suspect]
     Active Substance: VENETOCLAX
     Dosage: 15?21, CYCLE 3
     Route: 048
  7. VENETOCLAX. [Suspect]
     Active Substance: VENETOCLAX
     Dosage: 8?14, CYCLE 3
     Route: 048
  8. OBINUTUZUMAB. [Suspect]
     Active Substance: OBINUTUZUMAB
     Dosage: ON DAY 1, CYCLE 2?6
     Route: 042
  9. VENETOCLAX. [Suspect]
     Active Substance: VENETOCLAX
     Dosage: 1?28, CYCLES 4?14
     Route: 048
  10. OBINUTUZUMAB. [Suspect]
     Active Substance: OBINUTUZUMAB
     Dosage: ON DAY 8, CYCLE 1
     Route: 042
  11. IBRUTINIB [Suspect]
     Active Substance: IBRUTINIB
     Indication: CHRONIC LYMPHOCYTIC LEUKAEMIA
     Dosage: ON DAYS 1?28, CYCLES 1?19,?TOTAL DOSE ADMINISTERED THIS COURSE (DOSE)? 1680 MG, LAST ADMINISTERED DA
     Route: 048
     Dates: start: 20200825, end: 20210122

REACTIONS (3)
  - Hypoglycaemia [Recovered/Resolved]
  - Pericardial effusion [Recovered/Resolved]
  - Pericarditis [Recovered/Resolved with Sequelae]

NARRATIVE: CASE EVENT DATE: 20210123
